FAERS Safety Report 17106340 (Version 1)
Quarter: 2019Q4

REPORT INFORMATION
  Report Type: Spontaneous
  Country: PK (occurrence: PK)
  Receive Date: 20191203
  Receipt Date: 20191203
  Transmission Date: 20200122
  Serious: Yes (Life-Threatening, Other)
  Sender: FDA-Public Use
  Company Number: PK-FRESENIUS KABI-FK201913227

PATIENT
  Age: 73 Year
  Sex: Female

DRUGS (1)
  1. AMIODARONE HCL (MANUFACTURER UNKNOWN) [Suspect]
     Active Substance: AMIODARONE HYDROCHLORIDE
     Indication: ATRIAL FIBRILLATION
     Route: 065

REACTIONS (1)
  - Pulmonary alveolar haemorrhage [Recovered/Resolved]
